FAERS Safety Report 5124687-3 (Version None)
Quarter: 2006Q4

REPORT INFORMATION
  Report Type: 
  Country: None (occurrence: None)
  Receive Date: 20061006
  Receipt Date: 20061006
  Transmission Date: 20070319
  Serious: Yes (Hospitalization)
  Sender: FDA-Public Use
  Company Number: None

PATIENT
  Sex: Male
  Weight: 73.5 kg

DRUGS (3)
  1. TEMOZOLOMIDE [Suspect]
     Dosage: 3850 MG PT ON 7 DAYON, 7DAY OFF SCHEDULE OF TEMODAR
  2. CELEBREX [Suspect]
     Dosage: 20000 MG
  3. ACCUTANE [Suspect]
     Dosage: 2520 MG

REACTIONS (1)
  - PNEUMOCYSTIS JIROVECI PNEUMONIA [None]
